FAERS Safety Report 16852216 (Version 1)
Quarter: 2019Q3

REPORT INFORMATION
  Report Type: Spontaneous
  Country: US (occurrence: US)
  Receive Date: 20190925
  Receipt Date: 20190925
  Transmission Date: 20191005
  Serious: No
  Sender: FDA-Public Use
  Company Number: US-BAUSCH-BL-2019-025655

PATIENT
  Age: 65 Year
  Sex: Female

DRUGS (1)
  1. LUMIFY [Suspect]
     Active Substance: BRIMONIDINE TARTRATE
     Indication: OCULAR HYPERAEMIA
     Dosage: 1 DROP IN BOTH EYES AS NEEDED
     Route: 047
     Dates: start: 20190813, end: 20190831

REACTIONS (4)
  - Vision blurred [Recovered/Resolved]
  - Headache [Recovered/Resolved]
  - Ocular discomfort [Recovered/Resolved]
  - Eye pain [Recovered/Resolved]

NARRATIVE: CASE EVENT DATE: 201908
